FAERS Safety Report 8030763-8 (Version None)
Quarter: 2012Q1

REPORT INFORMATION
  Report Type: 
  Country: None (occurrence: None)
  Receive Date: 20120109
  Receipt Date: 20120105
  Transmission Date: 20120608
  Serious: Yes (Hospitalization)
  Sender: FDA-Public Use
  Company Number: PHEH2012US000749

PATIENT
  Age: 42 Year
  Sex: Female
  Weight: 49.887 kg

DRUGS (2)
  1. TOBI [Suspect]
     Dosage: 300 MG, BID (28 DAYS ON AN 28 DAYS OFF)
     Dates: start: 20080102
  2. PULMOZYME [Concomitant]
     Dosage: UNK

REACTIONS (1)
  - LUNG INFECTION [None]
